FAERS Safety Report 4293017-1 (Version None)
Quarter: 2004Q1

REPORT INFORMATION
  Report Type: 
  Country: None (occurrence: None)
  Receive Date: 20040212
  Receipt Date: 20030812
  Transmission Date: 20041129
  Serious: Yes (Hospitalization)
  Sender: FDA-Public Use
  Company Number: US-GLAXOSMITHKLINE-A0420848A

PATIENT
  Age: 45 Year
  Sex: Male

DRUGS (3)
  1. PAXIL [Suspect]
     Indication: MAJOR DEPRESSION
     Dosage: 50 PER DAY
     Route: 048
     Dates: start: 20020601, end: 20030805
  2. INSULIN [Concomitant]
  3. GLUCOTROL [Concomitant]

REACTIONS (1)
  - CONVULSION [None]
